FAERS Safety Report 26030783 (Version 2)
Quarter: 2025Q4

REPORT INFORMATION
  Report Type: Spontaneous
  Country: US (occurrence: US)
  Receive Date: 20251112
  Receipt Date: 20251113
  Transmission Date: 20260117
  Serious: No
  Sender: SANDOZ
  Company Number: US-SANDOZ-SDZ2025US083897

PATIENT

DRUGS (2)
  1. ESTRADIOL [Suspect]
     Active Substance: ESTRADIOL
     Indication: Product used for unknown indication
     Dosage: STRENGTH-0.1 MG / 1 10
     Route: 062
  2. ESTRADIOL [Suspect]
     Active Substance: ESTRADIOL
     Indication: Product used for unknown indication
     Dosage: ESTRADIOL TRANSDERMAL PATCH, 0.1 MG / 1 10
     Route: 065

REACTIONS (2)
  - Circumstance or information capable of leading to device use error [Unknown]
  - Product adhesion issue [Unknown]
